FAERS Safety Report 18253517 (Version 1)
Quarter: 2020Q3

REPORT INFORMATION
  Report Type: Spontaneous
  Country: US (occurrence: US)
  Receive Date: 20200910
  Receipt Date: 20200910
  Transmission Date: 20201103
  Serious: Yes (Disabling, Other)
  Sender: FDA-Public Use
  Company Number: US-PURDUE-USA-2020-0165489

PATIENT
  Sex: Male

DRUGS (10)
  1. OXYCODONE HCL TABLETS (RHODES 91?490) [Suspect]
     Active Substance: OXYCODONE HYDROCHLORIDE
     Indication: PRODUCT USED FOR UNKNOWN INDICATION
     Dosage: 30 MG, UNK
     Route: 048
     Dates: start: 20180607
  2. OXYMORPHONE [Suspect]
     Active Substance: OXYMORPHONE
     Dosage: 30 MG, BID
     Route: 048
     Dates: start: 20190418
  3. RANITIDINE HCL [Concomitant]
     Active Substance: RANITIDINE HYDROCHLORIDE
     Indication: PRODUCT USED FOR UNKNOWN INDICATION
     Dosage: 150 MG, UNK
     Route: 048
     Dates: start: 20180802
  4. CIALIS [Concomitant]
     Active Substance: TADALAFIL
     Indication: PRODUCT USED FOR UNKNOWN INDICATION
     Dosage: 10 MG, UNK
     Route: 048
     Dates: start: 20180814
  5. OPANA [Suspect]
     Active Substance: OXYMORPHONE HYDROCHLORIDE
     Dosage: 30 MG, BID
     Route: 048
     Dates: start: 20180606
  6. OXYMORPHONE [Suspect]
     Active Substance: OXYMORPHONE
     Indication: PRODUCT USED FOR UNKNOWN INDICATION
     Dosage: 10 MG, BID
     Route: 048
     Dates: start: 20190409
  7. OPANA [Suspect]
     Active Substance: OXYMORPHONE HYDROCHLORIDE
     Indication: PRODUCT USED FOR UNKNOWN INDICATION
     Dosage: 10 MG, BID
     Route: 048
     Dates: start: 20180521
  8. BUTRANS [Suspect]
     Active Substance: BUPRENORPHINE
     Indication: PRODUCT USED FOR UNKNOWN INDICATION
     Dosage: UNK
     Route: 048
  9. HYDROCODONE BITARTRATE AND ACETAMINOPHEN [Suspect]
     Active Substance: ACETAMINOPHEN\HYDROCODONE BITARTRATE
     Indication: PRODUCT USED FOR UNKNOWN INDICATION
     Dosage: UNK
     Route: 048
  10. NARCAN [Concomitant]
     Active Substance: NALOXONE HYDROCHLORIDE
     Indication: PRODUCT USED FOR UNKNOWN INDICATION
     Dosage: 4MG/0.1ML,UNK
     Route: 045
     Dates: start: 20180607

REACTIONS (7)
  - Disturbance in attention [Not Recovered/Not Resolved]
  - Learning disability [Not Recovered/Not Resolved]
  - Dependence [Not Recovered/Not Resolved]
  - Intellectual disability [Not Recovered/Not Resolved]
  - Disability [Not Recovered/Not Resolved]
  - Mental impairment [Not Recovered/Not Resolved]
  - Injury [Not Recovered/Not Resolved]
